FAERS Safety Report 7031235-X (Version None)
Quarter: 2010Q4

REPORT INFORMATION
  Report Type: 
  Country: None (occurrence: None)
  Receive Date: 20101006
  Receipt Date: 20101004
  Transmission Date: 20110411
  Serious: Yes (Hospitalization)
  Sender: FDA-Public Use
  Company Number: A0836248A

PATIENT
  Age: 52 Year
  Sex: Male
  Weight: 154.5 kg

DRUGS (4)
  1. AVANDIA [Suspect]
     Route: 048
     Dates: start: 20000101, end: 20030101
  2. GLUCOPHAGE [Concomitant]
  3. AVAPRO [Concomitant]
  4. GLYBURIDE [Concomitant]

REACTIONS (1)
  - MYOCARDIAL INFARCTION [None]
